FAERS Safety Report 14642135 (Version 1)
Quarter: 2018Q1

REPORT INFORMATION
  Report Type: Spontaneous
  Country: KW (occurrence: KW)
  Receive Date: 20180315
  Receipt Date: 20180315
  Transmission Date: 20180509
  Serious: Yes (Hospitalization)
  Sender: FDA-Public Use
  Company Number: KW-JNJFOC-20180310071

PATIENT
  Age: 78 Year
  Sex: Female

DRUGS (2)
  1. IBRUTINIB [Suspect]
     Active Substance: IBRUTINIB
     Indication: CHRONIC LYMPHOCYTIC LEUKAEMIA
     Route: 048
  2. IBRUTINIB [Suspect]
     Active Substance: IBRUTINIB
     Indication: BREAST CANCER
     Route: 048

REACTIONS (5)
  - Hyponatraemia [Unknown]
  - Off label use [Unknown]
  - Cardiac arrest [Not Recovered/Not Resolved]
  - Lower respiratory tract infection [Unknown]
  - Product use in unapproved indication [Unknown]
